FAERS Safety Report 8422501-1 (Version None)
Quarter: 2012Q2

REPORT INFORMATION
  Report Type: 
  Country: None (occurrence: None)
  Receive Date: 20120608
  Receipt Date: 20120601
  Transmission Date: 20120825
  Serious: Yes (Disabling)
  Sender: FDA-Public Use
  Company Number: AU-B.I. PHARMACEUTICALS,INC./RIDGEFIELD-2012-AU-01041AU

PATIENT
  Sex: Female
  Weight: 80 kg

DRUGS (12)
  1. PRADAXA [Suspect]
     Indication: ATRIAL FIBRILLATION
     Dosage: 300 MG
     Dates: start: 20110929, end: 20120516
  2. DITROPAN [Concomitant]
     Dosage: 10 MG
     Route: 048
  3. AZOPT [Concomitant]
     Dosage: 1%
  4. COGALGIN FORTE [Concomitant]
     Dosage: 500MG/30MG
     Route: 048
  5. RAMIPRIL [Concomitant]
     Dosage: 5 MG
  6. PANADOL OSTEO [Concomitant]
     Dosage: 3990 MG
  7. PRADAXA [Suspect]
     Indication: CEREBROVASCULAR ACCIDENT
  8. PROGESTERONE [Concomitant]
     Dosage: 4%
  9. ASPIRIN [Concomitant]
     Dosage: 100 MG
     Route: 048
  10. METOPROLOL TARTRATE [Concomitant]
     Dosage: 25 MG
  11. PANTOPRAZOLE [Concomitant]
     Dosage: 40 MG
  12. LATANOPROST [Concomitant]
     Dosage: 0.005%/0.5%

REACTIONS (6)
  - FATIGUE [None]
  - PAIN [None]
  - CONFUSIONAL STATE [None]
  - APATHY [None]
  - ASTHENIA [None]
  - MUSCULAR WEAKNESS [None]
